FAERS Safety Report 7859987-7 (Version None)
Quarter: 2011Q4

REPORT INFORMATION
  Report Type: 
  Country: None (occurrence: None)
  Receive Date: 20111026
  Receipt Date: 20111026
  Transmission Date: 20120403
  Serious: Yes (Hospitalization)
  Sender: FDA-Public Use
  Company Number: None

PATIENT
  Age: 55 Year
  Sex: Male
  Weight: 65.5901 kg

DRUGS (1)
  1. LINIFANIB [Suspect]
     Indication: COLON CANCER METASTATIC
     Dosage: ORAL, 12.5MG DAILY
     Route: 048
     Dates: start: 20110728

REACTIONS (2)
  - FATIGUE [None]
  - URINARY TRACT INFECTION [None]
